FAERS Safety Report 5598955-5 (Version None)
Quarter: 2008Q1

REPORT INFORMATION
  Report Type: 
  Country: None (occurrence: None)
  Receive Date: 20080122
  Receipt Date: 20080108
  Transmission Date: 20080703
  Serious: Yes (Hospitalization)
  Sender: FDA-Public Use
  Company Number: JP-GENENTECH-251455

PATIENT
  Age: 60 Year
  Sex: Male

DRUGS (11)
  1. BEVACIZUMAB [Suspect]
     Indication: COLON CANCER
     Dosage: 5 MG/KG, Q2W
     Dates: start: 20070911
  2. OXALIPLATIN [Suspect]
     Indication: COLON CANCER RECURRENT
     Dosage: UNK, UNKNOWN
     Route: 042
  3. LEUCOVORIN CALCIUM [Suspect]
     Indication: DRUG USE FOR UNKNOWN INDICATION
     Dosage: UNK, UNKNOWN
     Route: 042
  4. FLUOROURACIL [Suspect]
     Indication: DRUG USE FOR UNKNOWN INDICATION
     Route: 042
  5. IRINOTECAN [Suspect]
     Indication: COLON CANCER RECURRENT
     Dosage: UNK, UNK
     Route: 041
  6. DECADRON [Suspect]
     Indication: PROPHYLAXIS
     Dosage: 16 MG, QD
     Route: 042
     Dates: start: 20070911
  7. KYTRIL [Concomitant]
     Indication: DRUG USE FOR UNKNOWN INDICATION
     Dosage: UNK, UNK
     Dates: start: 20070911
  8. MAGNESIUM OXIDE [Concomitant]
     Indication: DRUG USE FOR UNKNOWN INDICATION
     Dates: start: 20070911
  9. STROCAIN [Concomitant]
     Indication: DRUG USE FOR UNKNOWN INDICATION
  10. SELBEX [Concomitant]
     Indication: DRUG USE FOR UNKNOWN INDICATION
  11. PRIMPERAN INJ [Concomitant]
     Indication: DRUG USE FOR UNKNOWN INDICATION

REACTIONS (1)
  - HEPATIC FUNCTION ABNORMAL [None]
